FAERS Safety Report 6762834-8 (Version None)
Quarter: 2010Q2

REPORT INFORMATION
  Report Type: 
  Country: None (occurrence: None)
  Receive Date: 20100609
  Receipt Date: 20100525
  Transmission Date: 20101027
  Serious: Yes (Other)
  Sender: FDA-Public Use
  Company Number: EE-SANOFI-AVENTIS-2010SA030253

PATIENT
  Sex: Female
  Weight: 100 kg

DRUGS (1)
  1. APIDRA [Suspect]
     Indication: GESTATIONAL DIABETES
     Route: 058
     Dates: start: 20081119, end: 20090204

REACTIONS (5)
  - DRUG EXPOSURE DURING PREGNANCY [None]
  - HYPERTENSION [None]
  - OEDEMA PERIPHERAL [None]
  - PRE-ECLAMPSIA [None]
  - PROTEINURIA [None]
